FAERS Safety Report 9402673 (Version 3)
Quarter: 2013Q4

REPORT INFORMATION
  Report Type: Spontaneous
  Country: US (occurrence: US)
  Receive Date: 20130716
  Receipt Date: 20131011
  Transmission Date: 20140711
  Serious: Yes (Hospitalization, Other)
  Sender: FDA-Public Use
  Company Number: US-ASTRAZENECA-2013SE51370

PATIENT
  Age: 63 Year
  Sex: Male
  Weight: 98.4 kg

DRUGS (21)
  1. TOPROL XL [Suspect]
     Indication: BLOOD PRESSURE ABNORMAL
     Dosage: GENERIC
     Route: 065
     Dates: start: 200803, end: 200805
  2. TOPROL XL [Suspect]
     Indication: HEART RATE IRREGULAR
     Dosage: GENERIC
     Route: 065
     Dates: start: 200803, end: 200805
  3. TOPROL XL [Suspect]
     Indication: BLOOD PRESSURE ABNORMAL
     Route: 048
     Dates: start: 200805
  4. TOPROL XL [Suspect]
     Indication: HEART RATE IRREGULAR
     Route: 048
     Dates: start: 200805
  5. TOPROL XL [Suspect]
     Indication: BLOOD PRESSURE ABNORMAL
     Route: 048
     Dates: start: 2013
  6. TOPROL XL [Suspect]
     Indication: HEART RATE IRREGULAR
     Route: 048
     Dates: start: 2013
  7. TOPROL XL [Suspect]
     Indication: BLOOD PRESSURE ABNORMAL
     Route: 048
     Dates: start: 20130522, end: 20130610
  8. TOPROL XL [Suspect]
     Indication: HEART RATE IRREGULAR
     Route: 048
     Dates: start: 20130522, end: 20130610
  9. TOPROL XL [Suspect]
     Indication: BLOOD PRESSURE ABNORMAL
     Route: 048
  10. TOPROL XL [Suspect]
     Indication: HEART RATE IRREGULAR
     Route: 048
  11. CRESTOR [Suspect]
     Route: 048
  12. LOT OF MEDICATIONS [Concomitant]
  13. LEVOXYL [Concomitant]
  14. METFORMIN HCL [Concomitant]
  15. GLIPIZIDE [Concomitant]
  16. JANUVIA [Concomitant]
  17. PLAVIX [Concomitant]
  18. MICARDIS [Concomitant]
  19. B 12 [Concomitant]
     Route: 060
  20. VITAMINS [Concomitant]
  21. ASPIRIN [Concomitant]

REACTIONS (7)
  - Hypertension [Recovered/Resolved]
  - Loss of consciousness [Recovered/Resolved]
  - Palpitations [Unknown]
  - Chest pain [Unknown]
  - Heart rate irregular [Unknown]
  - Dizziness [Unknown]
  - Drug ineffective [Unknown]
